FAERS Safety Report 8575179-0 (Version None)
Quarter: 2012Q3

REPORT INFORMATION
  Report Type: 
  Country: None (occurrence: None)
  Receive Date: 20120807
  Receipt Date: 20120725
  Transmission Date: 20120928
  Serious: Yes (Other)
  Sender: FDA-Public Use
  Company Number: US-ELI_LILLY_AND_COMPANY-US201207003753

PATIENT
  Age: 70 Year
  Sex: Female

DRUGS (3)
  1. CYMBALTA [Suspect]
     Indication: BACK PAIN
     Dosage: 60 MG, QD
     Route: 065
     Dates: start: 20110701
  2. CYMBALTA [Suspect]
     Dosage: 30 MG, QD
  3. CYMBALTA [Suspect]
     Dosage: 60 MG, QD

REACTIONS (9)
  - DIARRHOEA [None]
  - DRUG WITHDRAWAL SYNDROME [None]
  - BLISTER [None]
  - WEIGHT DECREASED [None]
  - RASH ERYTHEMATOUS [None]
  - PRURITUS [None]
  - CONFUSIONAL STATE [None]
  - MEMORY IMPAIRMENT [None]
  - GASTROINTESTINAL BACTERIAL INFECTION [None]
